FAERS Safety Report 4938566-5 (Version None)
Quarter: 2006Q1

REPORT INFORMATION
  Report Type: 
  Country: None (occurrence: None)
  Receive Date: 20060306
  Receipt Date: 20060222
  Transmission Date: 20060701
  Serious: Yes (Hospitalization, Other)
  Sender: FDA-Public Use
  Company Number: 2006027400

PATIENT
  Age: 67 Year
  Sex: Male

DRUGS (2)
  1. SPIRONOLACTONE [Suspect]
     Indication: CARDIAC FAILURE CONGESTIVE
     Dosage: 25 MG (25 MG, DAILY INTERVAL:  EVERY DAY), ORAL
     Route: 048
     Dates: start: 20041201, end: 20050909
  2. RAMIPRIL [Suspect]
     Indication: CARDIAC FAILURE CONGESTIVE
     Dosage: 5 MG (5 MG, DAILY INTERVAL:  EVERY DAY), ORAL
     Route: 048
     Dates: start: 20050101, end: 20050909

REACTIONS (2)
  - DRUG INTERACTION [None]
  - HYPERKALAEMIA [None]
